FAERS Safety Report 10642850 (Version 1)
Quarter: 2014Q4

REPORT INFORMATION
  Report Type: Spontaneous
  Country: US (occurrence: None)
  Receive Date: 20141209
  Receipt Date: 20141209
  Transmission Date: 20150529
  Serious: No
  Sender: FDA-Public Use
  Company Number: None

PATIENT

DRUGS (2)
  1. DIURAL [Suspect]
     Active Substance: FUROSEMIDE
  2. DIURIL [Suspect]
     Active Substance: CHLOROTHIAZIDE

REACTIONS (1)
  - Product name confusion [None]
